FAERS Safety Report 20605981 (Version 2)
Quarter: 2022Q1

REPORT INFORMATION
  Report Type: Other
  Country: US (occurrence: None)
  Receive Date: 20220317
  Receipt Date: 20220325
  Transmission Date: 20220423
  Serious: Yes (Other)
  Sender: FDA-Public Use
  Company Number: US-ROCHE-3050163

PATIENT
  Age: 54 Year
  Sex: Female
  Weight: 63.560 kg

DRUGS (3)
  1. OCREVUS [Suspect]
     Active Substance: OCRELIZUMAB
     Indication: Primary progressive multiple sclerosis
     Dosage: YES
     Route: 042
  2. COPAXONE [Concomitant]
     Active Substance: GLATIRAMER ACETATE
  3. TECFIDERA [Concomitant]
     Active Substance: DIMETHYL FUMARATE

REACTIONS (3)
  - COVID-19 [Recovered/Resolved]
  - Multiple sclerosis relapse [Recovered/Resolved]
  - Antibody test negative [Unknown]

NARRATIVE: CASE EVENT DATE: 20211201
